FAERS Safety Report 5122000-9 (Version None)
Quarter: 2006Q4

REPORT INFORMATION
  Report Type: 
  Country: None (occurrence: None)
  Receive Date: 20061006
  Receipt Date: 20060918
  Transmission Date: 20070319
  Serious: Yes (Other)
  Sender: FDA-Public Use
  Company Number: PHEH2006US11869

PATIENT
  Age: 76 Year
  Sex: Female

DRUGS (5)
  1. ZOMETA [Suspect]
     Indication: BONE CANCER METASTATIC
     Dosage: 4 MG EVERY 4 WEEKS
     Dates: start: 20041001, end: 20050601
  2. ZOMETA [Suspect]
     Dosage: 3.5 MG EVERY 4 WEEKS
     Dates: start: 20050701, end: 20060501
  3. ZOMETA [Suspect]
     Dosage: 3.3 MG EVERY 8 WEEKS
     Dates: start: 20060601, end: 20060801
  4. AROMASIN [Concomitant]
     Indication: BREAST CANCER
     Dosage: 25, UNK
     Dates: start: 20060401
  5. AREDIA [Suspect]
     Dosage: 90 MG MONTHLY
     Dates: start: 20040101, end: 20040901

REACTIONS (2)
  - BLOOD CREATININE INCREASED [None]
  - OSTEONECROSIS [None]
